FAERS Safety Report 5187439-4 (Version None)
Quarter: 2006Q4

REPORT INFORMATION
  Report Type: 
  Country: None (occurrence: None)
  Receive Date: 20061220
  Receipt Date: 20050523
  Transmission Date: 20070319
  Serious: No
  Sender: FDA-Public Use
  Company Number: US-AMGEN-US135528

PATIENT
  Sex: Female

DRUGS (5)
  1. ENBREL [Suspect]
     Indication: RHEUMATOID ARTHRITIS
     Route: 058
     Dates: start: 20050101
  2. METHOTREXATE [Suspect]
     Route: 065
     Dates: start: 20041001
  3. LOESTRIN [Concomitant]
     Route: 065
     Dates: start: 20000101
  4. PREDNISONE TAB [Concomitant]
     Route: 065
     Dates: start: 20040910, end: 20050805
  5. CELEBREX [Concomitant]
     Route: 065
     Dates: start: 20040910

REACTIONS (1)
  - HERPES ZOSTER [None]
